FAERS Safety Report 7508814-6 (Version None)
Quarter: 2011Q2

REPORT INFORMATION
  Report Type: 
  Country: None (occurrence: None)
  Receive Date: 20110527
  Receipt Date: 20090622
  Transmission Date: 20111010
  Serious: Yes (Other)
  Sender: FDA-Public Use
  Company Number: US-BAYER-2011-006413

PATIENT
  Age: 56 Year
  Sex: Female
  Weight: 91 kg

DRUGS (26)
  1. ZESTRIL [Concomitant]
     Dosage: 40 MG, QD
  2. PLASMALYTE [GLUCOSE,POTASSIUM CHLORIDE] [Concomitant]
     Dosage: UNK, PUMP
     Route: 042
     Dates: start: 20030909
  3. LANOXIN [Concomitant]
     Dosage: 0.25 MG, QD
  4. ACIPHEX [Concomitant]
     Dosage: 20 MG, QD
  5. NITROGLYCERIN [Concomitant]
     Dosage: UNK
     Route: 042
     Dates: start: 20030909
  6. INSULIN [Concomitant]
     Dosage: UNK
     Route: 042
     Dates: start: 20030909
  7. VASOPRESSIN [Concomitant]
     Dosage: UNK
     Route: 042
     Dates: start: 20030909
  8. CALCIUM CHLORIDE [Concomitant]
     Dosage: UNK, PUMP
     Route: 042
     Dates: start: 20030909
  9. RED BLOOD CELLS [Concomitant]
     Dosage: 2 U, UNK
     Route: 042
     Dates: start: 20030908
  10. AMARYL [Concomitant]
     Dosage: 4 MG, QD
  11. TRASYLOL [Suspect]
     Indication: CORONARY ARTERY BYPASS
     Dosage: 200 ML, ONCE, PRIME
     Route: 042
     Dates: start: 20030908, end: 20030908
  12. MAGNESIUM SULFATE [Concomitant]
     Dosage: 2 G, UNK, PUMP
     Route: 042
     Dates: start: 20030909
  13. SODIUM BICARBONATE [Concomitant]
     Dosage: 50 MEQ, UNK, PUMP
     Dates: start: 20030909
  14. TRASYLOL [Suspect]
     Dosage: UNK, DRIP
     Route: 042
     Dates: start: 20030908, end: 20030908
  15. LIDOCAINE [Concomitant]
     Dosage: 200 MG, UNK, PUMP
     Route: 042
     Dates: start: 20030909
  16. POTASSIUM CHLORIDE [Concomitant]
     Dosage: 20 MEQ, QD
  17. CORDARONE [Concomitant]
     Dosage: 0.25 MG, QD
  18. NEO-SYNEPHRINE [OXYMETAZOLINE HYDROCHLORIDE] [Concomitant]
     Dosage: UNK
     Route: 042
     Dates: start: 20030909
  19. MORPHINE [Concomitant]
     Dosage: UNK
     Route: 042
     Dates: start: 20030909
  20. ACTOS [Concomitant]
     Dosage: 45 MG, QD
  21. LASIX [Concomitant]
     Dosage: 40 MG, QD
  22. ETOMIDATE [Concomitant]
     Dosage: UNK
     Route: 042
     Dates: start: 20030909
  23. VERSED [Concomitant]
     Dosage: UNK
     Route: 042
     Dates: start: 20030909
  24. ESMOLOL [Concomitant]
     Dosage: 100 MG, UNK, PUMP
     Route: 042
     Dates: start: 20030909
  25. MANNITOL [Concomitant]
     Dosage: 30 MG, UNK, PUMP
     Route: 042
     Dates: start: 20030909
  26. HEPARIN [Concomitant]
     Dosage: UNK, PUMP
     Route: 042
     Dates: start: 20030909

REACTIONS (12)
  - RENAL IMPAIRMENT [None]
  - RENAL INJURY [None]
  - UNEVALUABLE EVENT [None]
  - EMOTIONAL DISTRESS [None]
  - STRESS [None]
  - RENAL FAILURE [None]
  - FEAR [None]
  - INJURY [None]
  - CEREBROVASCULAR ACCIDENT [None]
  - MULTI-ORGAN FAILURE [None]
  - ANXIETY [None]
  - PAIN [None]
